FAERS Safety Report 10016453 (Version 1)
Quarter: 2014Q1

REPORT INFORMATION
  Report Type: Spontaneous
  Country: US (occurrence: US)
  Receive Date: 20140317
  Receipt Date: 20140317
  Transmission Date: 20141002
  Serious: Yes (Hospitalization)
  Sender: FDA-Public Use
  Company Number: US-ABBVIE-14P-163-1211767-00

PATIENT
  Age: 58 Year
  Sex: Female
  Weight: 59.02 kg

DRUGS (6)
  1. CLARITHROMYCIN [Suspect]
     Indication: BRONCHITIS
     Dates: start: 20140224, end: 20140228
  2. PREDNISONE [Concomitant]
     Indication: BRONCHITIS
     Dates: end: 20140227
  3. VICTOZA [Concomitant]
     Indication: DIABETES MELLITUS
  4. EFFEXOR [Concomitant]
     Indication: ANXIETY
  5. CRESTOR [Concomitant]
     Indication: BLOOD CHOLESTEROL INCREASED
  6. LOSARTAN [Concomitant]
     Indication: HYPERTENSION

REACTIONS (8)
  - Oedema mouth [Not Recovered/Not Resolved]
  - Hypersensitivity [Not Recovered/Not Resolved]
  - Swollen tongue [Recovered/Resolved]
  - Oral mucosal erythema [Not Recovered/Not Resolved]
  - Stomatitis [Not Recovered/Not Resolved]
  - Oral disorder [Not Recovered/Not Resolved]
  - Oral mucosal blistering [Not Recovered/Not Resolved]
  - Thermal burn [Not Recovered/Not Resolved]
